FAERS Safety Report 16034628 (Version 1)
Quarter: 2019Q1

REPORT INFORMATION
  Report Type: Spontaneous
  Country: US (occurrence: US)
  Receive Date: 20190205
  Receipt Date: 20190205
  Transmission Date: 20190418
  Serious: No
  Sender: FDA-Public Use
  Company Number: None

PATIENT
  Age: 3 Year
  Sex: Male
  Weight: 18.14 kg

DRUGS (3)
  1. TODDLER MULTIVITAMINS [Concomitant]
  2. FIBER GUMMIES [Concomitant]
  3. MIRALAX [Suspect]
     Active Substance: POLYETHYLENE GLYCOL 3350
     Indication: CONSTIPATION
     Dosage: ONCE DAILY MIXED W/LIQUIDS BY MOUTH
     Dates: start: 20141214, end: 201509

REACTIONS (4)
  - Aggression [None]
  - Screaming [None]
  - Agitation [None]
  - Insomnia [None]

NARRATIVE: CASE EVENT DATE: 20181213
